FAERS Safety Report 7789428-X (Version None)
Quarter: 2011Q3

REPORT INFORMATION
  Report Type: 
  Country: None (occurrence: None)
  Receive Date: 20110930
  Receipt Date: 20110919
  Transmission Date: 20111222
  Serious: No
  Sender: FDA-Public Use
  Company Number: US-JNJFOC-20110908625

PATIENT
  Sex: Male
  Weight: 90.72 kg

DRUGS (2)
  1. UNKNOWN MEDICATION [Concomitant]
     Route: 065
  2. DURAGESIC-100 [Suspect]
     Indication: PAIN
     Dosage: 75 UG/HR - 3 EVERY 72 HOURS
     Route: 062
     Dates: start: 20090101

REACTIONS (2)
  - PRODUCT QUALITY ISSUE [None]
  - WRONG TECHNIQUE IN DRUG USAGE PROCESS [None]
